FAERS Safety Report 9094570 (Version 2)
Quarter: 2014Q2

REPORT INFORMATION
  Report Type: Report from Study
  Country: JP (occurrence: JP)
  Receive Date: 20130220
  Receipt Date: 20140410
  Transmission Date: 20141212
  Serious: Yes (Death, Hospitalization, Other)
  Sender: FDA-Public Use
  Company Number: JP-009507513-1302JPN008512

PATIENT
  Age: 29 Year
  Sex: Male
  Weight: 65 kg

DRUGS (21)
  1. TEMODAL [Suspect]
     Dosage: 200 MG/SQM, QD
     Route: 048
     Dates: start: 20110214, end: 20110218
  2. TEMODAL [Suspect]
     Dosage: 200 MG/SQM, QD
     Route: 048
     Dates: start: 20110331, end: 20110404
  3. TEMODAL [Suspect]
     Dosage: 200 MG/SQM, QD
     Route: 048
     Dates: start: 20110501, end: 20110505
  4. TEMODAL [Suspect]
     Dosage: 200 MG/SQM,, QD
     Route: 048
     Dates: start: 20110614, end: 20110618
  5. TEMODAL [Suspect]
     Dosage: 200 MG/SQM,, QD
     Route: 048
     Dates: start: 20110727, end: 20110731
  6. TEMODAL [Suspect]
     Dosage: 75 MG/SQM,, QD
     Route: 048
     Dates: start: 20111004, end: 20111122
  7. TEMODAL [Suspect]
     Dosage: 200 MG/SQM,, QD
     Route: 048
     Dates: start: 20120105, end: 20120109
  8. BAKTAR [Suspect]
     Indication: ANTIFUNGAL PROPHYLAXIS
     Dosage: UNK
     Route: 048
     Dates: start: 20100629, end: 20100709
  9. BAKTAR [Suspect]
     Dosage: UNK
     Route: 048
     Dates: start: 20111004, end: 20111017
  10. TEGRETOL [Suspect]
     Dosage: UNK
     Route: 048
     Dates: end: 20100618
  11. TEGRETOL [Suspect]
     Dosage: UNK
     Route: 048
     Dates: start: 20100615
  12. DEPAKENE [Suspect]
     Dosage: UNK
     Route: 048
  13. MAGMITT [Concomitant]
     Indication: PROPHYLAXIS
     Dosage: UNK
     Route: 048
     Dates: end: 20100727
  14. NAVOBAN [Concomitant]
     Indication: PROPHYLAXIS
     Dosage: AT ORAL INTAKE OF TMZ, DAILY DOSE UNKNOWN
     Route: 048
     Dates: start: 20100610, end: 20120109
  15. FAMOTIDINE [Concomitant]
     Indication: PROPHYLAXIS
     Dosage: UNK
     Route: 048
     Dates: start: 20100610, end: 20120213
  16. TEGRETOL [Concomitant]
     Indication: PROPHYLAXIS
     Dosage: UNK
     Route: 048
     Dates: end: 20120213
  17. TEMODAL [Suspect]
     Indication: ANAPLASTIC ASTROCYTOMA
     Dosage: 75 MG/SQM, QD
     Route: 048
     Dates: start: 20100610, end: 20100727
  18. TEMODAL [Suspect]
     Dosage: 150 MG/SQM, QD
     Route: 048
     Dates: start: 20100922, end: 20100926
  19. TEMODAL [Suspect]
     Dosage: 200 MG/SQM, QD
     Route: 048
     Dates: start: 20101027, end: 20101031
  20. TEMODAL [Suspect]
     Dosage: 200 MG/SQM, QD
     Route: 048
     Dates: start: 20101125, end: 20101129
  21. TEMODAL [Suspect]
     Dosage: 200 MG/SQM, QD
     Route: 048
     Dates: start: 20101229, end: 20110102

REACTIONS (8)
  - Hydrocephalus [Recovered/Resolved]
  - Convulsion [Recovered/Resolved]
  - White blood cell count decreased [Recovered/Resolved]
  - Platelet count decreased [Recovered/Resolved]
  - Lymphocyte count decreased [Recovering/Resolving]
  - Neutrophil count decreased [Recovering/Resolving]
  - Rash [Recovered/Resolved]
  - Disease progression [Fatal]
